FAERS Safety Report 9235551 (Version 1)
Quarter: 2013Q1

REPORT INFORMATION
  Report Type: Spontaneous
  Country: US (occurrence: None)
  Receive Date: 20121031
  Receipt Date: 20121031
  Transmission Date: 20140127
  Serious: No
  Sender: FDA-Public Use
  Company Number: PHEH2012US011999

PATIENT
  Age: 70 Year
  Sex: Female

DRUGS (9)
  1. GILENYA [Suspect]
     Route: 048
  2. ALEVE ( NAPROXEN SODIUM) [Concomitant]
  3. FAMPRIDINE ( FAMPRIDINE) [Concomitant]
  4. PRAMIPEXOLE ( PRAMIPEXOLE) [Concomitant]
  5. CLONAZEPAM( CLONAZEPAM) [Concomitant]
  6. LEVOTHYROXINE ( LEVOTHYROXINE) [Concomitant]
  7. BACLOFEN ( BACLOFEN) [Concomitant]
  8. MULTIVITAMINS ( ASCORBIC ACID, ERGOCALCIFEROL, FOLIC ACID, NICOTINAMIDE, PANTHENOL, RETINOL, RIBOFLAVIN, THIAMINE HYDROCHLORIDE) [Concomitant]
  9. VITAMIN D ( ERGOCALCIFEROL) [Concomitant]

REACTIONS (1)
  - Hypoaesthesia [None]
